FAERS Safety Report 17949346 (Version 1)
Quarter: 2020Q2

REPORT INFORMATION
  Report Type: Report from Study
  Country: None (occurrence: US)
  Receive Date: 20200626
  Receipt Date: 20200626
  Transmission Date: 20200714
  Serious: Yes (Other)
  Sender: FDA-Public Use
  Company Number: US-ABBVIE-20K-163-3457086-00

PATIENT
  Age: 56 Year
  Sex: Female

DRUGS (1)
  1. HUMIRA [Suspect]
     Active Substance: ADALIMUMAB
     Indication: RHEUMATOID ARTHRITIS
     Dosage: CITRATE FREE
     Route: 058

REACTIONS (7)
  - Dermatitis contact [Recovered/Resolved]
  - Melanocytic naevus [Recovering/Resolving]
  - Catheterisation cardiac [Unknown]
  - Lung disorder [Recovered/Resolved]
  - Asthma [Recovered/Resolved]
  - Ingrowing nail [Recovering/Resolving]
  - Tooth fracture [Recovered/Resolved]

NARRATIVE: CASE EVENT DATE: 20200416
